FAERS Safety Report 7241114-0 (Version None)
Quarter: 2011Q1

REPORT INFORMATION
  Report Type: 
  Country: None (occurrence: None)
  Receive Date: 20110124
  Receipt Date: 20101026
  Transmission Date: 20110831
  Serious: No
  Sender: FDA-Public Use
  Company Number: US-BAUSCH-2010BL006051

PATIENT
  Age: 63 Year
  Sex: Female

DRUGS (4)
  1. ASPIRIN [Concomitant]
     Indication: PRODUCT USED FOR UNKNOWN INDICATION
     Route: 048
  2. OMEPRAZOLE [Concomitant]
     Indication: PRODUCT USED FOR UNKNOWN INDICATION
     Route: 048
  3. LEXAPRO [Concomitant]
     Indication: PRODUCT USED FOR UNKNOWN INDICATION
     Route: 048
  4. DICLOFENAC SODIUM [Suspect]
     Route: 047
     Dates: start: 20101025, end: 20101026

REACTIONS (5)
  - WRONG DRUG ADMINISTERED [None]
  - VISION BLURRED [None]
  - EYE PRURITUS [None]
  - DRUG LABEL CONFUSION [None]
  - EYE IRRITATION [None]
